FAERS Safety Report 24553016 (Version 3)
Quarter: 2025Q1

REPORT INFORMATION
  Report Type: Spontaneous
  Country: US (occurrence: US)
  Receive Date: 20241027
  Receipt Date: 20250217
  Transmission Date: 20250408
  Serious: Yes (Other)
  Sender: BRISTOL-MYERS SQUIBB COMPANY
  Company Number: US-BRISTOL-MYERS SQUIBB COMPANY-2024-167487

PATIENT
  Age: 77 Year
  Sex: Male

DRUGS (2)
  1. LENALIDOMIDE [Suspect]
     Active Substance: LENALIDOMIDE
     Indication: Plasma cell myeloma
     Dosage: FREQUENCY- TAKE 1 CAPSULE BY MOUTH ONCE DAILY FOR 14 DAYS THEN 14 DAYS OFF
     Route: 048
  2. LENALIDOMIDE [Suspect]
     Active Substance: LENALIDOMIDE
     Dosage: FREQUENCY- TAKE 1 CAPSULE BY MOUTH ONCE DAILY FOR 14 DAYS THEN 14 DAYS OFF
     Route: 048

REACTIONS (7)
  - Thrombosis [Recovered/Resolved]
  - Fatigue [Not Recovered/Not Resolved]
  - Back pain [Not Recovered/Not Resolved]
  - Decreased appetite [Not Recovered/Not Resolved]
  - Constipation [Not Recovered/Not Resolved]
  - Diarrhoea [Not Recovered/Not Resolved]
  - Blood cholesterol [Not Recovered/Not Resolved]

NARRATIVE: CASE EVENT DATE: 20240101
